FAERS Safety Report 25501789 (Version 1)
Quarter: 2025Q3

REPORT INFORMATION
  Report Type: Spontaneous
  Country: US (occurrence: US)
  Receive Date: 20250702
  Receipt Date: 20250702
  Transmission Date: 20251021
  Serious: No
  Sender: TOLMAR
  Company Number: US-Tolmar-TLM-2025-02765

PATIENT
  Sex: Male
  Weight: 88.64 kg

DRUGS (3)
  1. ELIGARD [Suspect]
     Active Substance: LEUPROLIDE ACETATE
     Indication: Prostate cancer
     Route: 065
  2. DEVICE [Suspect]
     Active Substance: DEVICE
     Indication: Prostate cancer
     Route: 050
  3. YONSA [Concomitant]
     Active Substance: ABIRATERONE ACETATE
     Indication: Prostate cancer

REACTIONS (1)
  - Product storage error [Unknown]
